FAERS Safety Report 15222754 (Version 1)
Quarter: 2018Q3

REPORT INFORMATION
  Report Type: Spontaneous
  Country: US (occurrence: US)
  Receive Date: 20180705
  Receipt Date: 20180705
  Transmission Date: 20181010
  Serious: No
  Sender: FDA-Public Use
  Company Number: None

PATIENT
  Age: 78 Year
  Sex: Female
  Weight: 72.57 kg

DRUGS (9)
  1. ATORVASTATIN [Concomitant]
     Active Substance: ATORVASTATIN
  2. EXEMESTINE [Concomitant]
  3. PROLIA [Suspect]
     Active Substance: DENOSUMAB
     Indication: BONE DISORDER
     Dosage: ?          OTHER FREQUENCY:1 SHOT EVERY 6 MO.;?
     Dates: start: 201611, end: 201805
  4. FISH OIL [Concomitant]
     Active Substance: FISH OIL
  5. CYMBALTA [Concomitant]
     Active Substance: DULOXETINE HYDROCHLORIDE
  6. 81MG ASPIRIN [Concomitant]
  7. AMLODIPINE BESYLATE AND BENAZEPRIL HYDROCHLORIDE [Concomitant]
     Active Substance: AMLODIPINE BESYLATE\BENAZEPRIL HYDROCHLORIDE
  8. KLORCON [Concomitant]
  9. TRAMADOL. [Concomitant]
     Active Substance: TRAMADOL

REACTIONS (9)
  - Rash [None]
  - Asthenia [None]
  - Stomatitis [None]
  - Back pain [None]
  - Musculoskeletal pain [None]
  - Fatigue [None]
  - Cystitis [None]
  - Pain in extremity [None]
  - Cough [None]

NARRATIVE: CASE EVENT DATE: 20170501
